FAERS Safety Report 7973808-3 (Version None)
Quarter: 2011Q4

REPORT INFORMATION
  Report Type: 
  Country: None (occurrence: None)
  Receive Date: 20111213
  Receipt Date: 20111130
  Transmission Date: 20120403
  Serious: Yes (Hospitalization, Other)
  Sender: FDA-Public Use
  Company Number: CA-ELI_LILLY_AND_COMPANY-CA201111008985

PATIENT
  Sex: Female

DRUGS (6)
  1. ZYPREXA [Suspect]
     Dosage: 2.5 MG, QD
  2. LORAZEPAM [Concomitant]
  3. AMITRIPTYLINE HCL [Concomitant]
  4. PROZAC [Concomitant]
  5. ZYPREXA [Suspect]
     Indication: BIPOLAR DISORDER
     Dosage: 7.5 MG, QD
     Dates: start: 20010214, end: 20030401
  6. ZYPREXA [Suspect]
     Dosage: 5 MG, BID

REACTIONS (6)
  - HYPERLIPIDAEMIA [None]
  - HYPERGLYCAEMIA [None]
  - HYPEROSMOLAR STATE [None]
  - TYPE 2 DIABETES MELLITUS [None]
  - WEIGHT INCREASED [None]
  - VISION BLURRED [None]
